FAERS Safety Report 11679447 (Version 2)
Quarter: 2015Q4

REPORT INFORMATION
  Report Type: Spontaneous
  Country: US (occurrence: US)
  Receive Date: 20151027
  Receipt Date: 20151104
  Transmission Date: 20160304
  Serious: No
  Sender: FDA-Public Use
  Company Number: US-ELI_LILLY_AND_COMPANY-US200912005025

PATIENT
  Age: 63 Year
  Sex: Female

DRUGS (2)
  1. FORTEO [Suspect]
     Active Substance: TERIPARATIDE
     Dosage: 20 UG, DAILY (1/D)
     Route: 065
     Dates: end: 201012
  2. FORTEO [Suspect]
     Active Substance: TERIPARATIDE
     Indication: OSTEOPOROSIS
     Dosage: 20 UG, DAILY (1/D)
     Route: 065
     Dates: start: 200907

REACTIONS (9)
  - Cough [Recovered/Resolved]
  - Urinary tract infection [Unknown]
  - Bronchitis [Unknown]
  - Influenza like illness [Recovered/Resolved]
  - Drug intolerance [Recovered/Resolved]
  - Pyrexia [Recovered/Resolved]
  - Vomiting [Recovered/Resolved]
  - Blood calcium decreased [Unknown]
  - Intestinal congestion [Recovered/Resolved]

NARRATIVE: CASE EVENT DATE: 201012
